FAERS Safety Report 21081321 (Version 1)
Quarter: 2022Q3

REPORT INFORMATION
  Report Type: Spontaneous
  Country: US (occurrence: None)
  Receive Date: 20220713
  Receipt Date: 20220713
  Transmission Date: 20221027
  Serious: Yes (Hospitalization)
  Sender: FDA-Public Use
  Company Number: None

PATIENT
  Age: 20 Year
  Sex: Female

DRUGS (2)
  1. BAN ROLL-ON ANTIPERSPIRANT DEODORANT UNSCENTED [Suspect]
     Active Substance: ALUMINUM CHLOROHYDRATE
     Indication: Personal hygiene
     Dosage: OTHER QUANTITY : 1 ROLL EACH UNDERARM;?OTHER FREQUENCY : SINGLE APPLICATION;?
     Route: 061
     Dates: start: 20220623, end: 20220623
  2. unidentified topical cream [Concomitant]

REACTIONS (5)
  - Application site pain [None]
  - Application site erythema [None]
  - Application site pruritus [None]
  - Pyrexia [None]
  - Application site rash [None]

NARRATIVE: CASE EVENT DATE: 20220623
